FAERS Safety Report 6763618-7 (Version None)
Quarter: 2010Q2

REPORT INFORMATION
  Report Type: 
  Country: None (occurrence: None)
  Receive Date: 20100610
  Receipt Date: 20100604
  Transmission Date: 20101027
  Serious: Yes (Life-Threatening, Hospitalization, Other)
  Sender: FDA-Public Use
  Company Number: PHHY2009JP58891

PATIENT
  Age: 67 Year
  Sex: Female

DRUGS (6)
  1. NEORAL [Suspect]
     Indication: STILL'S DISEASE ADULT ONSET
     Dosage: 200 MG/DAY
     Route: 048
     Dates: start: 20081024, end: 20081103
  2. NEORAL [Suspect]
     Dosage: 100 MG/DAY
     Route: 048
     Dates: start: 20081104, end: 20081117
  3. NEORAL [Suspect]
     Dosage: 50 MG/DAY
     Route: 048
     Dates: start: 20081118, end: 20081205
  4. PREDNISOLONE [Suspect]
     Indication: STILL'S DISEASE ADULT ONSET
     Dosage: 30 MG/DAY
     Route: 048
     Dates: start: 20081016, end: 20081020
  5. PREDNISOLONE [Suspect]
     Dosage: 50 MG/DAY
     Route: 048
     Dates: start: 20081021
  6. METHYLPREDNISOLONE [Suspect]
     Indication: STILL'S DISEASE ADULT ONSET
     Dosage: 1000 MG/DAY
     Route: 042
     Dates: start: 20081021, end: 20081023

REACTIONS (6)
  - BLOOD LACTATE DEHYDROGENASE INCREASED [None]
  - CYTOMEGALOVIRUS INFECTION [None]
  - DISSEMINATED INTRAVASCULAR COAGULATION [None]
  - HISTIOCYTOSIS HAEMATOPHAGIC [None]
  - PANCYTOPENIA [None]
  - SERUM FERRITIN INCREASED [None]
